FAERS Safety Report 25428637 (Version 1)
Quarter: 2025Q2

REPORT INFORMATION
  Report Type: Spontaneous
  Country: ES (occurrence: ES)
  Receive Date: 20250612
  Receipt Date: 20250612
  Transmission Date: 20250716
  Serious: Yes (Hospitalization, Other)
  Sender: AUROBINDO
  Company Number: ES-AEMPS-1685292

PATIENT
  Age: 68 Year
  Sex: Female

DRUGS (4)
  1. MEROPENEM [Interacting]
     Active Substance: MEROPENEM
     Indication: Infection prophylaxis
     Route: 042
     Dates: start: 20250131, end: 20250131
  2. AMPICILLIN [Interacting]
     Active Substance: AMPICILLIN
     Indication: Infection prophylaxis
     Dosage: 4 GRAM, ONCE A DAY
     Route: 042
     Dates: start: 20250128, end: 20250131
  3. CEFTAZIDIME [Interacting]
     Active Substance: CEFTAZIDIME
     Indication: Infection prophylaxis
     Dosage: 6 GRAM, ONCE A DAY
     Route: 042
     Dates: start: 20250128, end: 20250131
  4. TEICOPLANIN [Interacting]
     Active Substance: TEICOPLANIN
     Indication: Infection prophylaxis
     Route: 042
     Dates: start: 20250131, end: 20250131

REACTIONS (1)
  - Status epilepticus [Recovered/Resolved]

NARRATIVE: CASE EVENT DATE: 20250131
